FAERS Safety Report 16878148 (Version 1)
Quarter: 2019Q4

REPORT INFORMATION
  Report Type: Spontaneous
  Country: CN (occurrence: CN)
  Receive Date: 20191002
  Receipt Date: 20191002
  Transmission Date: 20200122
  Serious: Yes (Life-Threatening)
  Sender: FDA-Public Use
  Company Number: CN-IGSA-SR10009205

PATIENT
  Age: 82 Year
  Sex: Female
  Weight: 52.5 kg

DRUGS (2)
  1. ALBUTEIN [Suspect]
     Active Substance: ALBUMIN HUMAN
     Indication: OVARIAN CANCER
     Dosage: 100 ML, SINGLE
     Route: 042
     Dates: start: 20190830, end: 20190830
  2. ALBUTEIN [Suspect]
     Active Substance: ALBUMIN HUMAN
     Indication: BLOOD ALBUMIN DECREASED

REACTIONS (9)
  - Monoparesis [Recovering/Resolving]
  - Atrial fibrillation [Recovering/Resolving]
  - Heart rate irregular [Recovering/Resolving]
  - Tachypnoea [Recovering/Resolving]
  - Oxygen saturation decreased [Recovering/Resolving]
  - Wheezing [Recovering/Resolving]
  - Blood pressure decreased [Recovering/Resolving]
  - Tachycardia paroxysmal [Recovering/Resolving]
  - Ventricular fibrillation [Recovering/Resolving]

NARRATIVE: CASE EVENT DATE: 20190830
